FAERS Safety Report 12917474 (Version 2)
Quarter: 2016Q4

REPORT INFORMATION
  Report Type: Spontaneous
  Country: US (occurrence: US)
  Receive Date: 20161107
  Receipt Date: 20161206
  Transmission Date: 20170207
  Serious: Yes (Hospitalization, Other)
  Sender: FDA-Public Use
  Company Number: US-UNITED THERAPEUTICS-UNT-2016-016893

PATIENT
  Age: 69 Year
  Sex: Male
  Weight: 80.5 kg

DRUGS (2)
  1. REMODULIN [Suspect]
     Active Substance: TREPROSTINIL
     Indication: PULMONARY HYPERTENSION
     Dosage: 0.00375 ?G/KG, CONTINUING
     Route: 041
     Dates: start: 20160928
  2. SILDENAFIL. [Concomitant]
     Active Substance: SILDENAFIL
     Indication: PRODUCT USED FOR UNKNOWN INDICATION

REACTIONS (11)
  - Fall [Unknown]
  - Disease progression [Unknown]
  - Weight decreased [Not Recovered/Not Resolved]
  - Joint injury [Recovered/Resolved]
  - Dyspnoea [Not Recovered/Not Resolved]
  - Syncope [Recovered/Resolved]
  - Orthostatic hypotension [Not Recovered/Not Resolved]
  - Diarrhoea [Not Recovered/Not Resolved]
  - Decreased appetite [Not Recovered/Not Resolved]
  - Right ventricular failure [Unknown]
  - Eye injury [Unknown]

NARRATIVE: CASE EVENT DATE: 201610
